FAERS Safety Report 12619588 (Version 2)
Quarter: 2016Q3

REPORT INFORMATION
  Report Type: Spontaneous
  Country: US (occurrence: US)
  Receive Date: 20160803
  Receipt Date: 20160809
  Transmission Date: 20161109
  Serious: Yes (Other)
  Sender: FDA-Public Use
  Company Number: US-PFIZER INC-2016369729

PATIENT
  Age: 76 Year
  Sex: Female
  Weight: 65.77 kg

DRUGS (4)
  1. PRISTIQ EXTENDED-RELEASE [Suspect]
     Active Substance: DESVENLAFAXINE SUCCINATE
     Indication: DEPRESSION
     Dosage: 0.5 DF;  SO SHE HAD TAKEN ABOUT 25 MG
     Route: 048
     Dates: start: 20160730, end: 2016
  2. LOSARTAN. [Concomitant]
     Active Substance: LOSARTAN
     Indication: BLOOD PRESSURE INCREASED
     Dosage: 50 MG, 1X/DAY (IN EVENING)
  3. ADVAIR HFA [Concomitant]
     Active Substance: FLUTICASONE PROPIONATE\SALMETEROL XINAFOATE
     Dosage: UNK, 2X/DAY (INHALER MORNING AND NIGHT, FLUTICASONE PROPIONATE 250 , SALMETEROL XINAFOATE 50 )
  4. ADVAIR HFA [Concomitant]
     Active Substance: FLUTICASONE PROPIONATE\SALMETEROL XINAFOATE
     Indication: ASTHMA
     Dosage: 1X/DAY; INHALER AT NIGHT BEFORE SHE GOES TO BED; 250-50 (250MG OF SOME THING AND 50MG OF SOMETHING E

REACTIONS (7)
  - Drug prescribing error [Unknown]
  - Amnesia [Unknown]
  - Insomnia [Recovered/Resolved]
  - Abnormal behaviour [Recovered/Resolved]
  - Intentional product misuse [Unknown]
  - Adverse drug reaction [Unknown]
  - Hallucination [Unknown]

NARRATIVE: CASE EVENT DATE: 20160730
